FAERS Safety Report 21481170 (Version 1)
Quarter: 2022Q4

REPORT INFORMATION
  Report Type: Spontaneous
  Country: US (occurrence: None)
  Receive Date: 20221019
  Receipt Date: 20221019
  Transmission Date: 20230112
  Serious: No
  Sender: FDA-Public Use
  Company Number: None

PATIENT
  Sex: Female

DRUGS (1)
  1. RASUVO [Suspect]
     Active Substance: METHOTREXATE SODIUM
     Indication: Rheumatoid arthritis
     Dosage: 25MG A WEEKLY UNDER THE SKIN?
     Route: 058
     Dates: start: 20220203

REACTIONS (3)
  - Pain in extremity [None]
  - Sleep disorder [None]
  - Drug ineffective [None]
